FAERS Safety Report 18538444 (Version 3)
Quarter: 2021Q1

REPORT INFORMATION
  Report Type: Spontaneous
  Country: JP (occurrence: JP)
  Receive Date: 20201124
  Receipt Date: 20210125
  Transmission Date: 20210419
  Serious: Yes (Disabling, Other)
  Sender: FDA-Public Use
  Company Number: NVSJ2020JP012391

PATIENT
  Age: 80 Year
  Sex: Female
  Weight: 48 kg

DRUGS (2)
  1. BEOVU [Suspect]
     Active Substance: BROLUCIZUMAB-DBLL
     Indication: POLYPOIDAL CHOROIDAL VASCULOPATHY
     Dosage: 6 MG
     Route: 031
     Dates: start: 20200929, end: 20200929
  2. BEOVU [Suspect]
     Active Substance: BROLUCIZUMAB-DBLL
     Indication: AGE-RELATED MACULAR DEGENERATION

REACTIONS (9)
  - Blindness transient [Recovered/Resolved]
  - Retinal artery stenosis [Unknown]
  - Vitreous opacities [Recovered/Resolved]
  - Keratic precipitates [Recovered/Resolved]
  - Retinal vasculitis [Recovered/Resolved with Sequelae]
  - Retinal perivascular sheathing [Not Recovered/Not Resolved]
  - Anterior chamber cell [Unknown]
  - Eye inflammation [Recovering/Resolving]
  - Vitritis [Recovering/Resolving]

NARRATIVE: CASE EVENT DATE: 202009
